FAERS Safety Report 9611244 (Version 3)
Quarter: 2014Q2

REPORT INFORMATION
  Report Type: Spontaneous
  Country: BR (occurrence: BR)
  Receive Date: 20131010
  Receipt Date: 20140417
  Transmission Date: 20141212
  Serious: Yes (Hospitalization, Other)
  Sender: FDA-Public Use
  Company Number: BR-AMGEN-BRASP2013070994

PATIENT
  Age: 73 Year
  Sex: Female
  Weight: 52 kg

DRUGS (9)
  1. ENBREL [Suspect]
     Indication: RHEUMATOID ARTHRITIS
     Dosage: 50 MG, ONCE WEEKLY
     Route: 058
     Dates: start: 201205, end: 201310
  2. METHOTREXATE [Concomitant]
     Dosage: 2.5 MG, UNK
  3. ENALAPRIL [Concomitant]
     Dosage: 10 MG, UNK
  4. SUSTRATE [Concomitant]
     Dosage: 5 MG, UNK
  5. METICORTEN [Concomitant]
     Dosage: 10 MG, UNK
  6. SIFROL [Concomitant]
     Indication: PARKINSON^S DISEASE
     Dosage: STRENGTH 0.25MG
  7. OSCAL                              /07357001/ [Concomitant]
     Indication: OSTEOPOROSIS
     Dosage: UNK
  8. DILACORON [Concomitant]
     Indication: CARDIAC DISORDER
     Dosage: STRENGTH 240MG
  9. ADDERA D3 [Concomitant]
     Indication: RHEUMATOID ARTHRITIS
     Dosage: 10 MG, 1X/DAY

REACTIONS (6)
  - Lung disorder [Recovering/Resolving]
  - Bone disorder [Unknown]
  - Laboratory test abnormal [Unknown]
  - Drug ineffective [Unknown]
  - C-reactive protein abnormal [Unknown]
  - Arthritis [Unknown]
